FAERS Safety Report 22335651 (Version 2)
Quarter: 2023Q2

REPORT INFORMATION
  Report Type: Spontaneous
  Country: JP (occurrence: JP)
  Receive Date: 20230518
  Receipt Date: 20230530
  Transmission Date: 20230722
  Serious: Yes (Death, Other)
  Sender: FDA-Public Use
  Company Number: JP-BIOVITRUM-2023-JP-010901

PATIENT
  Age: 63 Year
  Sex: Female

DRUGS (1)
  1. ANAKINRA [Suspect]
     Active Substance: ANAKINRA
     Indication: Schnitzler^s syndrome

REACTIONS (2)
  - Diffuse large B-cell lymphoma [Fatal]
  - Off label use [Unknown]
